FAERS Safety Report 9049310 (Version 2)
Quarter: 2012Q4

REPORT INFORMATION
  Report Type: Spontaneous
  Country: US (occurrence: None)
  Receive Date: 20120905
  Receipt Date: 20120905
  Transmission Date: 20130627
  Serious: Yes (Other)
  Sender: FDA-Public Use
  Company Number: 2012033165

PATIENT
  Sex: Female

DRUGS (2)
  1. CARIMUNE NF [Suspect]
     Indication: CHRONIC INFLAMMATORY DEMYELINATING POLYRADICULONEUROPATHY
     Route: 042
  2. SOLU-MEDROL (METHYLPREDNISOLONE SODIUM SUCCINATE) [Suspect]

REACTIONS (6)
  - No therapeutic response [None]
  - Drug ineffective [None]
  - Quadriplegia [None]
  - Respiratory failure [None]
  - Asthenia [None]
  - Dysphagia [None]
